FAERS Safety Report 19162995 (Version 1)
Quarter: 2021Q2

REPORT INFORMATION
  Report Type: Spontaneous
  Country: US (occurrence: US)
  Receive Date: 20210419
  Receipt Date: 20210419
  Transmission Date: 20210717
  Serious: Yes (Other)
  Sender: FDA-Public Use
  Company Number: None

PATIENT
  Age: 81 Year
  Sex: Female
  Weight: 87.54 kg

DRUGS (20)
  1. AMOXICILLIN. [Concomitant]
     Active Substance: AMOXICILLIN
  2. MYRBETRIQ EXTENDED RELEASE [Concomitant]
  3. REFRESH SOLUTION NOS [Concomitant]
     Active Substance: CARBOXYMETHYLCELLULOSE SODIUM\GLYCERIN
  4. TRAMADOL. [Concomitant]
     Active Substance: TRAMADOL
  5. KLORCON [Concomitant]
  6. DORZOLOMIDE TIMOLOL [Concomitant]
  7. MUCINEX [Concomitant]
     Active Substance: GUAIFENESIN
  8. BAUSCH + LOMB AREDS [Concomitant]
  9. PANTOPRAZOLE [Concomitant]
     Active Substance: PANTOPRAZOLE
  10. EYLEA [Concomitant]
     Active Substance: AFLIBERCEPT
  11. TIADYLT ER [Concomitant]
     Active Substance: DILTIAZEM HYDROCHLORIDE
  12. LOVASTATIN. [Concomitant]
     Active Substance: LOVASTATIN
  13. WIXELA INHAL [Concomitant]
  14. TYLENOL [Concomitant]
     Active Substance: ACETAMINOPHEN
  15. GLUCOSAMINE CONDROITIN [Concomitant]
  16. LATANOPROST OPHTHALMIC SOLUTION 0.005% 125MCG/2.5ML [Suspect]
     Active Substance: LATANOPROST
     Indication: GLAUCOMA
     Dosage: ?          OTHER STRENGTH:125/2.5 UG/ML;QUANTITY:1 GTT DROP(S);?
     Route: 031
     Dates: start: 20210323, end: 20210323
  17. HCTZ [Concomitant]
     Active Substance: HYDROCHLOROTHIAZIDE
  18. PROAIR INHALER [Concomitant]
     Active Substance: ALBUTEROL SULFATE
  19. VITAMIN B COMPLEX [Concomitant]
     Active Substance: CYANOCOBALAMIN\DEXPANTHENOL\NIACINAMIDE\PYRIDOXINE HYDROCHLORIDE\RIBOFLAVIN 5^-PHOSPHATE SODIUM\THIAMINE HYDROCHLORIDE\VITAMIN B COMPLEX
  20. VIT D [Concomitant]
     Active Substance: VITAMIN D NOS

REACTIONS (5)
  - Photophobia [None]
  - Strabismus [None]
  - Vision blurred [None]
  - Eye pain [None]
  - Photosensitivity reaction [None]

NARRATIVE: CASE EVENT DATE: 20210323
